FAERS Safety Report 5660255-2 (Version None)
Quarter: 2008Q1

REPORT INFORMATION
  Report Type: 
  Country: None (occurrence: None)
  Receive Date: 20080212
  Receipt Date: 20070606
  Transmission Date: 20080703
  Serious: Yes (Other)
  Sender: FDA-Public Use
  Company Number: MC200700454

PATIENT
  Age: 65 Year
  Sex: Male
  Weight: 72.6 kg

DRUGS (4)
  1. ANGIOMAX [Suspect]
     Indication: PERCUTANEOUS CORONARY INTERVENTION
     Dosage: 11 ML, BOLUS, IV BOLUS; 26 ML, HR, INTRAVENOUS
     Route: 042
     Dates: start: 20070530, end: 20070530
  2. ASPIRIN [Concomitant]
  3. LOVENOX       /00889602/(HEPARIN-FRACTION, SODIUM SALT) [Concomitant]
  4. PLAVIX [Concomitant]

REACTIONS (1)
  - CORONARY ARTERY THROMBOSIS [None]
